FAERS Safety Report 9014290 (Version 2)
Quarter: 2013Q4

REPORT INFORMATION
  Report Type: Spontaneous
  Country: GB (occurrence: GB)
  Receive Date: 20130115
  Receipt Date: 20131010
  Transmission Date: 20140711
  Serious: Yes (Other)
  Sender: FDA-Public Use
  Company Number: GB-WATSON-2012-23441

PATIENT
  Age: 46 Year
  Sex: Male
  Weight: 95 kg

DRUGS (2)
  1. NAPROXEN (UNKNOWN) [Suspect]
     Indication: MUSCULOSKELETAL PAIN
     Dosage: 500 MG, BID
     Route: 048
     Dates: start: 20120322, end: 20120517
  2. PARACETAMOL [Concomitant]
     Indication: PRODUCT USED FOR UNKNOWN INDICATION
     Dosage: UNK
     Route: 065

REACTIONS (2)
  - Sudden hearing loss [Recovering/Resolving]
  - Tinnitus [Recovering/Resolving]
